FAERS Safety Report 9245691 (Version 2)
Quarter: 2013Q4

REPORT INFORMATION
  Report Type: Spontaneous
  Country: CA (occurrence: CA)
  Receive Date: 20130422
  Receipt Date: 20131126
  Transmission Date: 20140711
  Serious: Yes (Hospitalization)
  Sender: FDA-Public Use
  Company Number: CA-NOVOPROD-375511

PATIENT
  Age: 76 Year
  Sex: Male
  Weight: 93 kg

DRUGS (3)
  1. VICTOZA [Suspect]
     Indication: TYPE 2 DIABETES MELLITUS
     Dosage: 0.6 MG, QD
     Route: 058
     Dates: start: 20121001, end: 20121007
  2. LIPITOR [Concomitant]
     Indication: DYSPEPSIA
     Dosage: 10 MG
     Route: 065
     Dates: start: 20040101
  3. PANTOLOC                           /01263204/ [Concomitant]
     Indication: DYSPEPSIA
     Dosage: 40 MG
     Route: 065
     Dates: start: 20070101

REACTIONS (3)
  - Crohn^s disease [Recovered/Resolved with Sequelae]
  - Vomiting [Unknown]
  - Nausea [Recovered/Resolved with Sequelae]
